FAERS Safety Report 4953534-5 (Version None)
Quarter: 2006Q1

REPORT INFORMATION
  Report Type: 
  Country: None (occurrence: None)
  Receive Date: 20060324
  Receipt Date: 20060316
  Transmission Date: 20060701
  Serious: Yes (Other)
  Sender: FDA-Public Use
  Company Number: AU-ROCHE-440770

PATIENT
  Age: 69 Year
  Sex: Female

DRUGS (10)
  1. CEFTRIAXONE [Suspect]
     Indication: DRUG USE FOR UNKNOWN INDICATION
     Route: 042
     Dates: start: 20050922, end: 20050925
  2. RULIDE [Suspect]
     Indication: DRUG USE FOR UNKNOWN INDICATION
     Route: 048
     Dates: start: 20050922, end: 20050925
  3. ETHACRYNIC ACID [Suspect]
     Indication: DRUG USE FOR UNKNOWN INDICATION
     Route: 042
     Dates: start: 20050926, end: 20050926
  4. AZITHROMYCIN [Suspect]
     Route: 042
     Dates: start: 20050925
  5. VANCOMYCIN HYDROCHLORIDE [Suspect]
     Route: 042
     Dates: start: 20050926, end: 20050929
  6. TAZOCIN [Concomitant]
  7. SPIRACTIN [Concomitant]
  8. RANI 2 [Concomitant]
  9. AMIODARONE HYDROCHLORIDE [Concomitant]
  10. WARFARIN SODIUM [Concomitant]
     Indication: DRUG USE FOR UNKNOWN INDICATION

REACTIONS (3)
  - DEAFNESS [None]
  - RENAL FAILURE ACUTE [None]
  - TINNITUS [None]
